FAERS Safety Report 13923588 (Version 1)
Quarter: 2017Q3

REPORT INFORMATION
  Report Type: Spontaneous
  Country: US (occurrence: US)
  Receive Date: 20170830
  Receipt Date: 20170830
  Transmission Date: 20171127
  Serious: Yes (Disabling)
  Sender: FDA-Public Use
  Company Number: None

PATIENT
  Age: 64 Year
  Sex: Male
  Weight: 139.5 kg

DRUGS (7)
  1. ATACAND [Concomitant]
     Active Substance: CANDESARTAN CILEXETIL
  2. BYETTA [Concomitant]
     Active Substance: EXENATIDE
  3. ALLEGRA [Concomitant]
     Active Substance: FEXOFENADINE HYDROCHLORIDE
  4. METFORMIN [Concomitant]
     Active Substance: METFORMIN HYDROCHLORIDE
  5. ATORVASTATIN [Suspect]
     Active Substance: ATORVASTATIN
     Indication: BLOOD CHOLESTEROL INCREASED
     Dates: start: 20170612, end: 20170821
  6. VIT D. [Concomitant]
  7. DYNACIRC [Concomitant]
     Active Substance: ISRADIPINE

REACTIONS (3)
  - Confusional state [None]
  - Arthralgia [None]
  - Trigger finger [None]

NARRATIVE: CASE EVENT DATE: 20170612
